FAERS Safety Report 6587165-0 (Version None)
Quarter: 2010Q1

REPORT INFORMATION
  Report Type: 
  Country: None (occurrence: None)
  Receive Date: 20100217
  Receipt Date: 20090526
  Transmission Date: 20100710
  Serious: Yes (Other)
  Sender: FDA-Public Use
  Company Number: US-ALLERGAN-0905848US

PATIENT
  Age: 72 Year
  Sex: Female
  Weight: 49.887 kg

DRUGS (17)
  1. BOTOX [Suspect]
     Indication: HEMIPLEGIA
     Dosage: UNK, SINGLE
     Route: 030
     Dates: start: 20081219, end: 20081219
  2. BOTOX [Suspect]
     Dosage: 600 UNITS, SINGLE
     Route: 030
     Dates: start: 20090410, end: 20090410
  3. BOTOX [Suspect]
     Dates: start: 20090410, end: 20090410
  4. BOTOX [Suspect]
     Dates: start: 20090410, end: 20090410
  5. BOTOX [Suspect]
     Dates: start: 20090410, end: 20090410
  6. BOTOX [Suspect]
     Dosage: UNK, SINGLE
     Route: 030
     Dates: start: 20080601, end: 20080601
  7. ZOLOFT [Concomitant]
     Indication: DEPRESSION
     Dosage: 100 MG, QD
     Route: 048
  8. AMBIEN [Concomitant]
     Indication: INSOMNIA
     Dosage: 10 MG, QHS
     Route: 048
  9. PREDNISONE [Concomitant]
     Indication: RAYNAUD'S PHENOMENON
     Dosage: 5 MG, QD
     Route: 048
  10. DURAGESIC-100 [Concomitant]
     Indication: PAIN
     Dosage: 50 UG, Q 72H
     Route: 061
  11. HYDROCODONE [Concomitant]
     Indication: PAIN
     Dosage: 5/325, PRN
     Route: 048
  12. NORVASC [Concomitant]
     Indication: RAYNAUD'S PHENOMENON
     Dosage: 5 MG, QD
     Route: 048
  13. K-DUR [Concomitant]
     Dosage: 20 MEQ, TID
     Route: 048
  14. BENICAR [Concomitant]
     Dosage: 20 MG, QD
     Route: 048
  15. ZANAFLEX [Concomitant]
     Indication: MUSCLE SPASMS
     Dosage: 2 MG, QHS
     Route: 048
  16. CARAFATE [Concomitant]
     Indication: PEPTIC ULCER
     Dosage: 0.5 G, TID
     Route: 048
  17. PREMARIN [Concomitant]
     Dosage: 0.625 MG, QD
     Route: 048

REACTIONS (7)
  - ASTHENIA [None]
  - BLOOD PRESSURE INCREASED [None]
  - DYSARTHRIA [None]
  - DYSPHAGIA [None]
  - MICTURITION URGENCY [None]
  - MOVEMENT DISORDER [None]
  - POLLAKIURIA [None]
